FAERS Safety Report 11231358 (Version 1)
Quarter: 2015Q2

REPORT INFORMATION
  Report Type: Spontaneous
  Country: US (occurrence: None)
  Receive Date: 20150630
  Receipt Date: 20150630
  Transmission Date: 20150821
  Serious: Yes (Hospitalization)
  Sender: FDA-Public Use
  Company Number: None

PATIENT
  Age: 28 Year
  Sex: Male

DRUGS (2)
  1. VENLAFAXINE 150MG GENERIC [Suspect]
     Active Substance: VENLAFAXINE HYDROCHLORIDE
     Indication: MAJOR DEPRESSION
     Dosage: 1  QD  ORAL
     Route: 048
  2. VENLAFAXINE 75MG [Suspect]
     Active Substance: VENLAFAXINE HYDROCHLORIDE
     Dosage: 1  QD  ORAL
     Route: 048

REACTIONS (7)
  - Depressed mood [None]
  - Irritability [None]
  - Affective disorder [None]
  - Product substitution issue [None]
  - Therapeutic response changed [None]
  - Suicidal ideation [None]
  - Anger [None]

NARRATIVE: CASE EVENT DATE: 20130519
